FAERS Safety Report 16805924 (Version 1)
Quarter: 2019Q3

REPORT INFORMATION
  Report Type: Spontaneous
  Country: FR (occurrence: FR)
  Receive Date: 20190913
  Receipt Date: 20190913
  Transmission Date: 20191005
  Serious: Yes (Other)
  Sender: FDA-Public Use
  Company Number: FR-SHIRE-FR201929225

PATIENT

DRUGS (3)
  1. MINIDRIL, COMPRIM? ENROB? [Concomitant]
     Indication: CONTRACEPTION
     Route: 048
  2. FIRAZYR [Suspect]
     Active Substance: ICATIBANT ACETATE
     Indication: HEREDITARY ANGIOEDEMA WITH C1 ESTERASE INHIBITOR DEFICIENCY
     Route: 058
     Dates: start: 20190609, end: 20190610
  3. EXACYL 1 G/10 ML, SOLUTION BUVABLE [Concomitant]
     Indication: HEREDITARY ANGIOEDEMA WITH C1 ESTERASE INHIBITOR DEFICIENCY
     Route: 048
     Dates: start: 20190609

REACTIONS (2)
  - Cholestasis [Recovered/Resolved]
  - Hepatocellular injury [Recovered/Resolved]

NARRATIVE: CASE EVENT DATE: 20190611
